FAERS Safety Report 15497070 (Version 3)
Quarter: 2018Q4

REPORT INFORMATION
  Report Type: Report from Study
  Country: JP (occurrence: JP)
  Receive Date: 20181015
  Receipt Date: 20181114
  Transmission Date: 20190205
  Serious: Yes (Death)
  Sender: FDA-Public Use
  Company Number: JP-BEH-2018095767

PATIENT
  Age: 70 Year
  Sex: Male
  Weight: 72.4 kg

DRUGS (3)
  1. BERIPLEX P/N [Suspect]
     Active Substance: COAGULATION FACTOR IX HUMAN\COAGULATION FACTOR VII HUMAN\COAGULATION FACTOR X HUMAN\PROTEIN C\PROTEIN S HUMAN\PROTHROMBIN
     Indication: HAEMORRHAGE
     Dosage: 1810 IU, TOT
     Route: 042
     Dates: start: 20180701, end: 20180701
  2. MANNITOL. [Concomitant]
     Active Substance: MANNITOL
     Dosage: UNK
     Route: 065
     Dates: start: 20180701, end: 20180701
  3. NICARDIPINE [Concomitant]
     Active Substance: NICARDIPINE
     Dosage: UNK
     Route: 065
     Dates: start: 20180701, end: 20180701

REACTIONS (3)
  - Putamen haemorrhage [Fatal]
  - Depressed level of consciousness [Fatal]
  - Haematoma [Fatal]

NARRATIVE: CASE EVENT DATE: 20180701
